FAERS Safety Report 4847516-1 (Version None)
Quarter: 2005Q4

REPORT INFORMATION
  Report Type: 
  Country: None (occurrence: None)
  Receive Date: 20051207
  Receipt Date: 20051127
  Transmission Date: 20060501
  Serious: Yes (Hospitalization, Other)
  Sender: FDA-Public Use
  Company Number: US-NOVOPROD-248884

PATIENT
  Age: 72 Year
  Sex: Male

DRUGS (1)
  1. NOVOSEVEN [Suspect]
     Indication: FACTOR VII DEFICIENCY
     Dosage: 1 MG EVERY 6 HOURS
     Route: 042
     Dates: start: 20051118, end: 20051119

REACTIONS (3)
  - BLINDNESS [None]
  - INFARCTION [None]
  - THROMBOTIC STROKE [None]
